FAERS Safety Report 17091465 (Version 1)
Quarter: 2019Q4

REPORT INFORMATION
  Report Type: Spontaneous
  Country: US (occurrence: US)
  Receive Date: 20191031
  Receipt Date: 20191031
  Transmission Date: 20200122
  Serious: Yes (Life-Threatening, Hospitalization)
  Sender: FDA-Public Use
  Company Number: None

PATIENT
  Age: 68 Year
  Sex: Female
  Weight: 70 kg

DRUGS (1)
  1. WARFARIN [Suspect]
     Active Substance: WARFARIN
     Indication: ATRIAL FIBRILLATION
     Dates: start: 20080101

REACTIONS (5)
  - International normalised ratio increased [None]
  - Fall [None]
  - Haemorrhage intracranial [None]
  - Headache [None]
  - Subdural haemorrhage [None]

NARRATIVE: CASE EVENT DATE: 20191018
